FAERS Safety Report 8817043 (Version 1)
Quarter: 2012Q4

REPORT INFORMATION
  Report Type: Spontaneous
  Country: US (occurrence: None)
  Receive Date: 20121003
  Receipt Date: 20121003
  Transmission Date: 20130627
  Serious: Yes (Hospitalization)
  Sender: FDA-Public Use
  Company Number: None

PATIENT
  Age: 60 Year
  Sex: Male

DRUGS (2)
  1. MORPHINE [Suspect]
     Indication: PAIN
     Route: 048
     Dates: start: 20120626, end: 20120904
  2. MORPHINE [Suspect]
     Indication: PAIN
     Route: 048
     Dates: start: 20120626, end: 20120904

REACTIONS (8)
  - Muscular weakness [None]
  - Urinary retention [None]
  - Constipation [None]
  - Decreased appetite [None]
  - Abdominal distension [None]
  - Abdominal discomfort [None]
  - Treatment noncompliance [None]
  - Drug administration error [None]
